FAERS Safety Report 8865368 (Version 1)
Quarter: 2012Q4

REPORT INFORMATION
  Report Type: 
  Country: US (occurrence: US)
  Receive Date: 20121024
  Receipt Date: 20121024
  Transmission Date: 20130627
  Serious: No
  Sender: FDA-Public Use
  Company Number: US-AMGEN-USASP2012002654

PATIENT
  Age: 56 Year
  Sex: Female

DRUGS (9)
  1. ENBREL [Suspect]
     Indication: PRODUCT USED FOR UNKNOWN INDICATION
     Dosage: 50 mg, qwk
     Route: 058
  2. AMBIEN [Concomitant]
     Dosage: 5 mg, UNK
     Route: 048
  3. RECLAST [Concomitant]
     Dosage: 100 UNK, UNK
     Route: 058
  4. ESTRADERM [Concomitant]
  5. LEVSINEX [Concomitant]
     Dosage: .375 UNK, UNK
     Route: 048
  6. FOLIC ACID [Concomitant]
     Dosage: 1 mg, UNK
     Route: 048
  7. CALCIUM 600 [Concomitant]
     Route: 048
  8. VITAMIN D /00107901/ [Concomitant]
     Dosage: 1000 IU, UNK
     Route: 048
  9. ALEVE [Concomitant]
     Dosage: 220 mg, UNK
     Route: 048

REACTIONS (1)
  - Rheumatoid arthritis [Not Recovered/Not Resolved]
